FAERS Safety Report 18286030 (Version 2)
Quarter: 2020Q4

REPORT INFORMATION
  Report Type: Spontaneous
  Country: US (occurrence: US)
  Receive Date: 20200919
  Receipt Date: 20201006
  Transmission Date: 20210113
  Serious: Yes (Hospitalization)
  Sender: FDA-Public Use
  Company Number: US-UNITED THERAPEUTICS-UNT-2020-011658

PATIENT
  Age: 49 Year
  Sex: Female
  Weight: 68.03 kg

DRUGS (6)
  1. TYVASO [Suspect]
     Active Substance: TREPROSTINIL
     Dosage: 18-54 ?G, QID
  2. SILDENAFIL CITRATE. [Concomitant]
     Active Substance: SILDENAFIL CITRATE
     Indication: PRODUCT USED FOR UNKNOWN INDICATION
     Dosage: UNK
     Route: 065
  3. TYVASO [Suspect]
     Active Substance: TREPROSTINIL
     Indication: PULMONARY ARTERIAL HYPERTENSION
     Dosage: UNK
     Dates: start: 20200721
  4. TYVASO [Suspect]
     Active Substance: TREPROSTINIL
     Dosage: 24 ?G
     Dates: start: 2020
  5. TYVASO [Suspect]
     Active Substance: TREPROSTINIL
     Dosage: 36 ?G, QID
     Dates: start: 2020
  6. TYVASO [Suspect]
     Active Substance: TREPROSTINIL
     Dosage: 18-54 ?G, QID
     Dates: start: 20200812

REACTIONS (15)
  - Fluid overload [Unknown]
  - Decreased appetite [Unknown]
  - Constipation [Unknown]
  - Oedema peripheral [Unknown]
  - Pleural effusion [Unknown]
  - Dizziness [Unknown]
  - Oedema [Not Recovered/Not Resolved]
  - Poor quality sleep [Unknown]
  - Hypotension [Unknown]
  - Productive cough [Unknown]
  - Headache [Unknown]
  - Mobility decreased [Unknown]
  - Pain in extremity [Unknown]
  - Oxygen saturation decreased [Unknown]
  - Diarrhoea [Unknown]

NARRATIVE: CASE EVENT DATE: 2020
